FAERS Safety Report 20626394 (Version 10)
Quarter: 2022Q3

REPORT INFORMATION
  Report Type: Report from Study
  Country: GB (occurrence: GB)
  Receive Date: 20220323
  Receipt Date: 20220829
  Transmission Date: 20221027
  Serious: Yes (Other)
  Sender: FDA-Public Use
  Company Number: GB-ABBVIE-22K-167-4306722-00

PATIENT
  Age: 80 Year
  Sex: Female

DRUGS (11)
  1. PRAMIPEXOLE [Suspect]
     Active Substance: PRAMIPEXOLE
     Indication: Product used for unknown indication
     Dosage: 1.57 MILLIGRAM, QD (AT 5 AM)
     Route: 065
  2. PRAMIPEXOLE [Suspect]
     Active Substance: PRAMIPEXOLE
     Dosage: 157 MILLIGRAM, QD (AT 5 AM)
     Route: 065
  3. CARBIDOPA\LEVODOPA [Suspect]
     Active Substance: CARBIDOPA\LEVODOPA
     Indication: Parkinson^s disease
     Dosage: CR 0.6MLS; ED 1.0MLS; MD 6.0MLS (INTESTINAL GEL)
     Route: 065
  4. CARBIDOPA\LEVODOPA [Suspect]
     Active Substance: CARBIDOPA\LEVODOPA
     Dosage: UNK (MD 6.0 CR 1.2 ED 1.8)
     Route: 065
  5. CARBIDOPA\LEVODOPA [Suspect]
     Active Substance: CARBIDOPA\LEVODOPA
     Dosage: ED 1.5 MLS(INTESTINAL GEL)
     Route: 065
  6. CARBIDOPA\LEVODOPA [Suspect]
     Active Substance: CARBIDOPA\LEVODOPA
     Dosage: UNK (ED 1.5ML MD-6ML CD-0.6ML INCREASED TO 0.8ML, ED-1.5ML INCREASED TO 1.6ML ED 1.5ML)
     Route: 065
  7. MOVICOL [Concomitant]
     Active Substance: POLYETHYLENE GLYCOL 3350\POTASSIUM CHLORIDE\SODIUM BICARBONATE\SODIUM CHLORIDE
     Indication: Product used for unknown indication
     Dosage: 1 DOSAGE FORM, QD (1 SACHET )
     Route: 065
  8. ENTACAPONE [Concomitant]
     Active Substance: ENTACAPONE
     Indication: Product used for unknown indication
     Dosage: 200 MILLIGRAM, BID
     Route: 065
  9. RASAGILINE [Concomitant]
     Active Substance: RASAGILINE
     Indication: Product used for unknown indication
     Dosage: 1 MILLIGRAM, QD (AT 5 AM)
     Route: 065
  10. SINEMET [Concomitant]
     Active Substance: CARBIDOPA\LEVODOPA
     Indication: Product used for unknown indication
     Dosage: (SINEMET CR, 25MGS/100MGS AT 22:00 ONCE IN NIGHT)
     Route: 065
  11. SINEMET [Concomitant]
     Active Substance: CARBIDOPA\LEVODOPA
     Dosage: UNK
     Route: 048

REACTIONS (25)
  - Haematochezia [Unknown]
  - Stoma site haemorrhage [Unknown]
  - Device dislocation [Unknown]
  - Dystonia [Unknown]
  - Hallucination [Unknown]
  - Abdominal distension [Not Recovered/Not Resolved]
  - Stoma site discharge [Unknown]
  - Tremor [Unknown]
  - Abdominal pain [Unknown]
  - Stoma site infection [Unknown]
  - Constipation [Recovered/Resolved]
  - Muscle rigidity [Not Recovered/Not Resolved]
  - Stoma site pain [Unknown]
  - Peripheral swelling [Unknown]
  - Erythema [Unknown]
  - On and off phenomenon [Unknown]
  - Freezing phenomenon [Not Recovered/Not Resolved]
  - Muscle spasms [Unknown]
  - Wrong device used [Recovered/Resolved]
  - Drug ineffective [Unknown]
  - Device expulsion [Unknown]
  - Balance disorder [Unknown]
  - Gait disturbance [Unknown]
  - Dizziness [Unknown]
  - Dyskinesia [Unknown]

NARRATIVE: CASE EVENT DATE: 20220101
